FAERS Safety Report 17955930 (Version 1)
Quarter: 2020Q2

REPORT INFORMATION
  Report Type: Spontaneous
  Country: SI (occurrence: SI)
  Receive Date: 20200629
  Receipt Date: 20200629
  Transmission Date: 20200714
  Serious: Yes (Other)
  Sender: FDA-Public Use
  Company Number: SI-TEVA-2020-SI-1792174

PATIENT
  Age: 75 Year
  Sex: Female

DRUGS (4)
  1. LINOLA UREA [Concomitant]
     Dosage: AS NECESSARY
  2. CAPECITABINE. [Concomitant]
     Active Substance: CAPECITABINE
     Dosage: ACCORDING TO THE SCHEME
  3. PACLITAXIN 6 MG/ML, KONCENTRAT ZA RAZTOPINO ZA INFUNDIRANJE [Suspect]
     Active Substance: PACLITAXEL
     Indication: BREAST CANCER
     Dosage: 12.4 MG
     Dates: start: 20200520, end: 20200603
  4. TARGINACT 10 MG /5 MG [Concomitant]
     Dosage: 10MG/5 MG

REACTIONS (2)
  - Infusion related reaction [Recovered/Resolved]
  - Hypertension [Recovered/Resolved]

NARRATIVE: CASE EVENT DATE: 20200603
